FAERS Safety Report 6429096-2 (Version None)
Quarter: 2009Q4

REPORT INFORMATION
  Report Type: 
  Country: None (occurrence: None)
  Receive Date: 20091030
  Receipt Date: 20091022
  Transmission Date: 20100525
  Serious: Yes (Life-Threatening, Hospitalization)
  Sender: FDA-Public Use
  Company Number: 2009SP032932

PATIENT
  Age: 82 Year
  Sex: Male

DRUGS (3)
  1. INTEGRILIN [Suspect]
     Indication: PERCUTANEOUS CORONARY INTERVENTION
     Dosage: ONCE; INBO; IV
     Route: 040
  2. ASPIRIN [Concomitant]
  3. HEPARIN [Concomitant]

REACTIONS (14)
  - ANGINA UNSTABLE [None]
  - CORONARY ARTERY DISEASE [None]
  - CORONARY ARTERY STENOSIS [None]
  - DIFFUSE ALVEOLAR DAMAGE [None]
  - ELECTROCARDIOGRAM ST SEGMENT DEPRESSION [None]
  - HYPOXIA [None]
  - LUNG INFILTRATION [None]
  - MYOCARDIAL INFARCTION [None]
  - NON-CARDIOGENIC PULMONARY OEDEMA [None]
  - QRS AXIS ABNORMAL [None]
  - RESPIRATORY FAILURE [None]
  - SINUS TACHYCARDIA [None]
  - VASCULAR GRAFT COMPLICATION [None]
  - VENOUS STENOSIS [None]
